FAERS Safety Report 10818616 (Version 3)
Quarter: 2015Q3

REPORT INFORMATION
  Report Type: Spontaneous
  Country: US (occurrence: US)
  Receive Date: 20150218
  Receipt Date: 20150812
  Transmission Date: 20151125
  Serious: Yes (Hospitalization, Other)
  Sender: FDA-Public Use
  Company Number: US-PFIZER INC-2015062579

PATIENT
  Sex: Female
  Weight: 72 kg

DRUGS (2)
  1. HYDROCODONE [Suspect]
     Active Substance: HYDROCODONE
     Dosage: UNK
  2. LYRICA [Suspect]
     Active Substance: PREGABALIN
     Indication: PAIN
     Dosage: UNK
     Dates: end: 201408

REACTIONS (4)
  - Depressed mood [Unknown]
  - Cerebrovascular accident [Not Recovered/Not Resolved]
  - Pain [Unknown]
  - Carotid artery disease [Unknown]

NARRATIVE: CASE EVENT DATE: 201504
